FAERS Safety Report 18052725 (Version 7)
Quarter: 2021Q1

REPORT INFORMATION
  Report Type: Spontaneous
  Country: US (occurrence: US)
  Receive Date: 20200722
  Receipt Date: 20210323
  Transmission Date: 20210419
  Serious: No
  Sender: FDA-Public Use
  Company Number: US-GLAXOSMITHKLINE-US2020AMR133956

PATIENT
  Age: 65 Year
  Sex: Female

DRUGS (8)
  1. ZEJULA [Suspect]
     Active Substance: NIRAPARIB
     Dosage: 100 MG, QD
  2. ZEJULA [Suspect]
     Active Substance: NIRAPARIB
     Dosage: 100 MG, QD
  3. ZEJULA [Suspect]
     Active Substance: NIRAPARIB
     Dosage: 100 MG, QD
  4. LYNPARZA [Suspect]
     Active Substance: OLAPARIB
     Indication: PRODUCT USED FOR UNKNOWN INDICATION
     Dosage: UNK
  5. ZEJULA [Suspect]
     Active Substance: NIRAPARIB
     Indication: OVARIAN CANCER
     Dosage: 100 MG, QD, IN THE PM WITH FOOD
     Dates: start: 20200713
  6. ZEJULA [Suspect]
     Active Substance: NIRAPARIB
     Dosage: 100 MG, QD (Q PM)
  7. ZEJULA [Suspect]
     Active Substance: NIRAPARIB
     Dosage: 100 MG, QD
  8. RUBRACA [Suspect]
     Active Substance: RUCAPARIB CAMSYLATE
     Indication: PRODUCT USED FOR UNKNOWN INDICATION
     Dosage: UNK
     Route: 065

REACTIONS (15)
  - Contusion [Not Recovered/Not Resolved]
  - Chromaturia [Unknown]
  - Blood count abnormal [Unknown]
  - Fatigue [Not Recovered/Not Resolved]
  - Back pain [Recovering/Resolving]
  - Somnolence [Unknown]
  - Condition aggravated [Not Recovered/Not Resolved]
  - Memory impairment [Unknown]
  - Peripheral swelling [Unknown]
  - Headache [Recovering/Resolving]
  - Platelet count decreased [Not Recovered/Not Resolved]
  - Off label use [Unknown]
  - Red blood cell count decreased [Recovering/Resolving]
  - Insomnia [Unknown]
  - Drug monitoring procedure not performed [Unknown]

NARRATIVE: CASE EVENT DATE: 202012
